FAERS Safety Report 5705438-8 (Version None)
Quarter: 2008Q2

REPORT INFORMATION
  Report Type: 
  Country: None (occurrence: None)
  Receive Date: 20080410
  Receipt Date: 20080331
  Transmission Date: 20081010
  Serious: Yes (Other)
  Sender: FDA-Public Use
  Company Number: 2008S1005527

PATIENT
  Age: 30 Year
  Sex: Female

DRUGS (1)
  1. ISOTRETINOIN [Suspect]
     Indication: ACNE
     Dosage: 20 MG; ORAL
     Route: 048
     Dates: start: 20070101

REACTIONS (2)
  - LYMPHADENITIS [None]
  - LYMPHOID TISSUE HYPERPLASIA [None]
